FAERS Safety Report 18281532 (Version 1)
Quarter: 2020Q3

REPORT INFORMATION
  Report Type: Spontaneous
  Country: FR (occurrence: FR)
  Receive Date: 20200918
  Receipt Date: 20200918
  Transmission Date: 20201103
  Serious: Yes (Hospitalization)
  Sender: FDA-Public Use
  Company Number: NVSC2020FR252106

PATIENT
  Age: 22 Year
  Sex: Female
  Weight: 46.2 kg

DRUGS (2)
  1. ATARAX [Suspect]
     Active Substance: HYDROXYZINE HYDROCHLORIDE
     Indication: SUICIDE ATTEMPT
     Dosage: 2 DF, TOTAL (2 BOITES)
     Route: 048
     Dates: start: 20191107, end: 20191107
  2. ACETAMINOPHEN (PARACETAMOL) [Suspect]
     Active Substance: ACETAMINOPHEN
     Indication: SUICIDE ATTEMPT
     Dosage: 12 G, TOTAL
     Route: 048
     Dates: start: 20191107, end: 20191107

REACTIONS (3)
  - Electrocardiogram T wave amplitude decreased [Recovered/Resolved]
  - Toxicity to various agents [Recovered/Resolved]
  - Intentional overdose [Recovered/Resolved]

NARRATIVE: CASE EVENT DATE: 20191107
